FAERS Safety Report 4644445-3 (Version None)
Quarter: 2005Q2

REPORT INFORMATION
  Report Type: 
  Country: None (occurrence: None)
  Receive Date: 20050331
  Receipt Date: 20041201
  Transmission Date: 20051028
  Serious: No
  Sender: FDA-Public Use
  Company Number: 04P-163-0282200-00

PATIENT
  Age: 63 Year
  Sex: Female
  Weight: 79.3795 kg

DRUGS (7)
  1. HUMIRA [Suspect]
     Indication: RHEUMATOID ARTHRITIS
     Dosage: 40 MG, 1 IN 2 WK, SUBCUTANEOUS
     Route: 058
     Dates: start: 20040923
  2. RESEDRONATE SODIUM [Concomitant]
  3. METHOTREXATE [Concomitant]
  4. LEUCOVOR [Concomitant]
  5. ATENOLOL [Concomitant]
  6. AZATHIOPRINE [Concomitant]
  7. MECLIZINE [Concomitant]

REACTIONS (4)
  - ABDOMINAL PAIN UPPER [None]
  - DIARRHOEA [None]
  - PHARYNGOLARYNGEAL PAIN [None]
  - TOOTH DISORDER [None]
